FAERS Safety Report 14974029 (Version 1)
Quarter: 2018Q2

REPORT INFORMATION
  Report Type: Spontaneous
  Country: CH (occurrence: CH)
  Receive Date: 20180605
  Receipt Date: 20180605
  Transmission Date: 20180711
  Serious: Yes (Other)
  Sender: FDA-Public Use
  Company Number: CH-MYLANLABS-2018M1037356

PATIENT
  Age: 70 Year
  Sex: Female

DRUGS (1)
  1. AMIODARONE [Suspect]
     Active Substance: AMIODARONE
     Indication: ATRIAL FIBRILLATION
     Route: 065

REACTIONS (3)
  - Hyperthyroidism [Recovering/Resolving]
  - Thyrotoxic crisis [Recovering/Resolving]
  - Encephalopathy [Recovered/Resolved]
